FAERS Safety Report 5796168-5 (Version None)
Quarter: 2008Q3

REPORT INFORMATION
  Report Type: 
  Country: None (occurrence: None)
  Receive Date: 20080701
  Receipt Date: 20080617
  Transmission Date: 20090109
  Serious: No
  Sender: FDA-Public Use
  Company Number: FR-ELI_LILLY_AND_COMPANY-FR200804001487

PATIENT
  Age: 68 Year
  Sex: Male
  Weight: 83 kg

DRUGS (7)
  1. GEMZAR [Suspect]
     Indication: ADENOCARCINOMA PANCREAS
     Dosage: 1000 MG/M2 OR 2000 MG ON DAY 1, 81 15 FOR FOUR WEEKLY CYCLES
     Route: 042
     Dates: start: 20070808, end: 20071121
  2. AMARYL [Concomitant]
     Indication: DIABETES MELLITUS
     Dosage: UNK, 2/D
     Route: 065
  3. LANTUS [Concomitant]
     Indication: DIABETES MELLITUS
     Dosage: 36 U, UNKNOWN
     Route: 065
  4. NOVORAPID [Concomitant]
     Indication: DIABETES MELLITUS
     Dosage: 2 U, 3/D
     Route: 065
  5. STAGID [Concomitant]
     Indication: DIABETES MELLITUS
     Dosage: UNK, 2/D
     Route: 065
  6. MONOTILDIEM [Concomitant]
     Indication: HYPERTENSION
     Dosage: UNK, UNKNOWN
     Route: 065
  7. COAPROVEL [Concomitant]
     Indication: HYPERTENSION
     Dosage: UNK, UNKNOWN
     Route: 065

REACTIONS (4)
  - HAEMOLYSIS [None]
  - MICROANGIOPATHY [None]
  - OEDEMA PERIPHERAL [None]
  - PROTEINURIA [None]
